FAERS Safety Report 8395378-0 (Version None)
Quarter: 2012Q2

REPORT INFORMATION
  Report Type: 
  Country: None (occurrence: None)
  Receive Date: 20120530
  Receipt Date: 20120522
  Transmission Date: 20120825
  Serious: Yes (Hospitalization, Other)
  Sender: FDA-Public Use
  Company Number: JP-AMGEN-JPNCT2011055005

PATIENT
  Age: 67 Year
  Sex: Female
  Weight: 58 kg

DRUGS (8)
  1. MEROPENEM [Concomitant]
     Indication: VIRAL INFECTION
     Dosage: UNK
     Route: 042
     Dates: start: 20110610, end: 20110612
  2. CALCICHEW D3 [Concomitant]
     Indication: OSTEOPOROSIS
     Dosage: UNK UNK, QD
     Route: 048
     Dates: start: 20081008
  3. AMIGRAND [Concomitant]
     Indication: VIRAL INFECTION
     Dosage: UNK
     Route: 042
     Dates: start: 20110601, end: 20110622
  4. NASONEX [Concomitant]
     Indication: RHINITIS
     Dosage: ADEQUATE DOSE
     Route: 045
     Dates: start: 20101019
  5. DENOSUMAB [Suspect]
     Indication: OSTEOPOROSIS
     Dosage: 60 MG, Q6MO
     Route: 058
     Dates: start: 20101028, end: 20110428
  6. CEFOPERAZONE SODIUM [Concomitant]
     Indication: VIRAL INFECTION
     Dosage: UNK
     Route: 042
     Dates: start: 20110601, end: 20110609
  7. SELTOUCH [Concomitant]
     Indication: BACK PAIN
     Dosage: ADEQUATE DOSE
     Route: 062
     Dates: start: 20090801
  8. INDOMETHACIN [Concomitant]
     Indication: BACK PAIN
     Dosage: ADEQUATE DOSE
     Route: 062
     Dates: start: 20090625

REACTIONS (1)
  - LUNG ADENOCARCINOMA [None]
